FAERS Safety Report 6182245-6 (Version None)
Quarter: 2009Q2

REPORT INFORMATION
  Report Type: 
  Country: None (occurrence: None)
  Receive Date: 20090507
  Receipt Date: 20090504
  Transmission Date: 20091009
  Serious: Yes (Other)
  Sender: FDA-Public Use
  Company Number: US-BIOGENIDEC-2009BI007706

PATIENT
  Sex: Female

DRUGS (1)
  1. TYSABRI [Suspect]
     Indication: MULTIPLE SCLEROSIS
     Route: 042
     Dates: start: 20090109, end: 20090320

REACTIONS (12)
  - CEREBROVASCULAR ACCIDENT [None]
  - COUGH [None]
  - FATIGUE [None]
  - GENERAL SYMPTOM [None]
  - HEADACHE [None]
  - HYPERSENSITIVITY [None]
  - HYPOAESTHESIA [None]
  - MOYAMOYA DISEASE [None]
  - NASOPHARYNGITIS [None]
  - PHARYNGITIS STREPTOCOCCAL [None]
  - URTICARIA [None]
  - WHITE BLOOD CELL COUNT INCREASED [None]
